FAERS Safety Report 8421819-6 (Version None)
Quarter: 2012Q2

REPORT INFORMATION
  Report Type: 
  Country: None (occurrence: None)
  Receive Date: 20120608
  Receipt Date: 20120531
  Transmission Date: 20120825
  Serious: Yes (Hospitalization)
  Sender: FDA-Public Use
  Company Number: JP-B.I. PHARMACEUTICALS,INC./RIDGEFIELD-2012-BP-12745NB

PATIENT
  Age: 76 Year
  Sex: Female

DRUGS (10)
  1. SENNOSIDE [Concomitant]
     Route: 065
  2. CARVEDILOL [Concomitant]
     Route: 065
  3. MOTILIUM [Suspect]
     Indication: NAUSEA
     Route: 048
     Dates: start: 20120402, end: 20120530
  4. PRAMIPEXOLE DIHYDROCHLORIDE [Suspect]
     Indication: PARKINSON'S DISEASE
     Dosage: 0.25 MG
     Route: 048
     Dates: start: 20120312, end: 20120507
  5. CARBIDOPA AND LEVODOPA [Concomitant]
     Route: 065
  6. GASMOTIN [Concomitant]
     Route: 065
  7. OLMESARTAN MEDOXOMIL [Concomitant]
     Route: 065
  8. DEPAS [Concomitant]
     Route: 065
  9. PRAMIPEXOLE DIHYDROCHLORIDE [Suspect]
     Dosage: 0.375 MG
     Route: 048
     Dates: start: 20120508, end: 20120530
  10. CALCITAMIN [Concomitant]
     Route: 048

REACTIONS (1)
  - LIVER DISORDER [None]
